FAERS Safety Report 6678779-8 (Version None)
Quarter: 2010Q2

REPORT INFORMATION
  Report Type: 
  Country: None (occurrence: None)
  Receive Date: 20100408
  Receipt Date: 20100324
  Transmission Date: 20101027
  Serious: Yes (Hospitalization)
  Sender: FDA-Public Use
  Company Number: 2009002758

PATIENT
  Age: 76 Year
  Sex: Male
  Weight: 80 kg

DRUGS (9)
  1. ERLOTINIB HYDROCHLORIDE [Suspect]
     Indication: LUNG SQUAMOUS CELL CARCINOMA STAGE UNSPECIFIED
     Dosage: (150 MG, QD), ORAL; (150 MG,QD), ORAL
     Route: 048
     Dates: start: 20090612, end: 20090620
  2. ERLOTINIB HYDROCHLORIDE [Suspect]
     Indication: LUNG SQUAMOUS CELL CARCINOMA STAGE UNSPECIFIED
     Dosage: (150 MG, QD), ORAL; (150 MG,QD), ORAL
     Route: 048
     Dates: start: 20090918, end: 20091001
  3. HARNAL (TAMSULOSIN HYDROCHLORIDE) [Concomitant]
  4. NITRODERM [Concomitant]
  5. BETAMETHASONE [Concomitant]
  6. OMEPRAZOLE [Concomitant]
  7. POVIDONE IODINE [Concomitant]
  8. OLOPATADINE HYDROCHLORIDE [Concomitant]
  9. LEVOFLOXACIN [Concomitant]

REACTIONS (4)
  - C-REACTIVE PROTEIN INCREASED [None]
  - GAMMA-GLUTAMYLTRANSFERASE INCREASED [None]
  - GLOMERULONEPHRITIS [None]
  - PNEUMONIA [None]
